FAERS Safety Report 10474147 (Version 1)
Quarter: 2014Q3

REPORT INFORMATION
  Report Type: Spontaneous
  Country: US (occurrence: US)
  Receive Date: 20140924
  Receipt Date: 20140924
  Transmission Date: 20150326
  Serious: No
  Sender: FDA-Public Use
  Company Number: US-ASTRAZENECA-2013SE72093

PATIENT
  Age: 85 Year
  Sex: Female
  Weight: 73.9 kg

DRUGS (6)
  1. FOOD SUPPLEMTENTS [Concomitant]
  2. ZESTRIL [Suspect]
     Active Substance: LISINOPRIL
     Indication: HEART VALVE INCOMPETENCE
     Route: 048
     Dates: start: 201309
  3. ZESTRIL [Suspect]
     Active Substance: LISINOPRIL
     Indication: HEART VALVE INCOMPETENCE
     Route: 048
     Dates: start: 201309
  4. CRANBERRY EXTRACT [Concomitant]
  5. OTHER FOOD EXTRACTS [Concomitant]
  6. GINGER EXTRACT [Concomitant]

REACTIONS (4)
  - Off label use [Unknown]
  - Arthropathy [Unknown]
  - Bladder prolapse [Unknown]
  - Urinary tract infection [Unknown]
